FAERS Safety Report 9972573 (Version 1)
Quarter: 2014Q1

REPORT INFORMATION
  Report Type: Report from Study
  Country: US (occurrence: US)
  Receive Date: 20140306
  Receipt Date: 20140306
  Transmission Date: 20141002
  Serious: No
  Sender: FDA-Public Use
  Company Number: US-ABBVIE-13P-163-1154150-00

PATIENT
  Age: 35 Year
  Sex: Female

DRUGS (11)
  1. HUMIRA [Suspect]
     Indication: PSORIATIC ARTHROPATHY
     Dates: start: 20130817
  2. PROTOPIC [Concomitant]
     Indication: PSORIASIS
  3. MONO LINYAH [Concomitant]
     Indication: SKIN FISSURES
     Dosage: DAILY
  4. MONO LINYAH [Concomitant]
     Indication: NAIL DISORDER
  5. KETOCONAZOLE WITH DESONIDE [Concomitant]
     Indication: FUNGAL SKIN INFECTION
  6. KETOCONAZOLE WITH DESONIDE [Concomitant]
     Indication: FUNGAL SKIN INFECTION
  7. FLUOCINOLONE [Concomitant]
     Indication: PSORIASIS
     Dosage: APPLIED TWO WEEKS ON THE TWO WEEKS OFF
     Route: 061
  8. CLOBETASOL [Concomitant]
     Indication: PSORIASIS
     Dosage: APPLIED TO SCALP EVERY MORNING
  9. ELMIRON [Concomitant]
     Indication: CYSTITIS INTERSTITIAL
     Dosage: BY MOUTH
     Route: 048
  10. AMITRIPTYLINE [Concomitant]
     Indication: COLITIS
     Dosage: BY MOUTH 25MG DAILY
     Route: 048
  11. NAPROXYN SODIUM [Concomitant]
     Indication: ARTHRALGIA
     Dosage: BY MOUTH EVERY 6 TO 8 HOURS
     Route: 048

REACTIONS (4)
  - Injection site pain [Unknown]
  - Injection site pain [Unknown]
  - Injection site bruising [Recovering/Resolving]
  - Injection site erythema [Unknown]
